FAERS Safety Report 7270996-1 (Version None)
Quarter: 2011Q1

REPORT INFORMATION
  Report Type: 
  Country: None (occurrence: None)
  Receive Date: 20110202
  Receipt Date: 20110119
  Transmission Date: 20110831
  Serious: Yes (Other)
  Sender: FDA-Public Use
  Company Number: IT-CELGENEUS-083-21880-10120988

PATIENT

DRUGS (8)
  1. CYCLOPHOSPHAMIDE [Suspect]
     Indication: B-CELL LYMPHOMA
     Route: 065
     Dates: start: 20081127, end: 20081127
  2. PREDNISONE [Suspect]
     Indication: B-CELL LYMPHOMA
     Route: 065
     Dates: start: 20081127, end: 20081201
  3. DOXORUBICIN HCL [Suspect]
     Indication: B-CELL LYMPHOMA
     Route: 065
     Dates: start: 20081127, end: 20081127
  4. REVLIMID [Suspect]
     Indication: B-CELL LYMPHOMA
     Route: 048
     Dates: start: 20081127, end: 20081210
  5. RITUXIMAB [Suspect]
     Indication: B-CELL LYMPHOMA
     Route: 065
     Dates: start: 20081204, end: 20081204
  6. VINCRISTINE [Suspect]
     Indication: B-CELL LYMPHOMA
     Route: 065
     Dates: start: 20081127, end: 20081127
  7. LMWH [Concomitant]
     Indication: PROPHYLAXIS
     Route: 058
  8. FILGRASTIM [Concomitant]
     Indication: PROPHYLAXIS
     Route: 065

REACTIONS (1)
  - BLOOD CREATINE PHOSPHOKINASE INCREASED [None]
